FAERS Safety Report 8974600 (Version 1)
Quarter: 2012Q4

REPORT INFORMATION
  Report Type: Report from Study
  Country: CA (occurrence: CA)
  Receive Date: 20121220
  Receipt Date: 20121220
  Transmission Date: 20130627
  Serious: Yes (Disabling, Other)
  Sender: FDA-Public Use
  Company Number: CA-SANOFI-AVENTIS-200515749GDDC

PATIENT
  Age: 63 Year
  Sex: Female

DRUGS (12)
  1. DOCETAXEL [Suspect]
     Indication: BREAST CARCINOMA
     Route: 042
     Dates: start: 20011009, end: 20020130
  2. DOXORUBICIN [Suspect]
     Indication: BREAST CARCINOMA
     Route: 042
     Dates: start: 20011009, end: 20020130
  3. CYCLOPHOSPHAMIDE [Suspect]
     Indication: BREAST CARCINOMA
     Route: 042
     Dates: start: 20011009, end: 20020130
  4. ARIMIDEX ^ZENECA^ [Concomitant]
     Indication: HORMONE THERAPY
     Route: 048
     Dates: start: 20040316, end: 200502
  5. PARACETAMOL [Concomitant]
     Indication: STRESS
     Dosage: Dose as used: UNK
     Route: 048
     Dates: start: 20010901
  6. CIPROFLOXACIN [Concomitant]
     Route: 048
     Dates: start: 20021013, end: 20021022
  7. CIPROFLOXACIN [Concomitant]
     Route: 048
     Dates: start: 20021104, end: 20021113
  8. CIPROFLOXACIN [Concomitant]
     Route: 048
     Dates: start: 20021125, end: 20021204
  9. CIPROFLOXACIN [Concomitant]
     Route: 048
     Dates: start: 20021216, end: 20021225
  10. CIPROFLOXACIN [Concomitant]
     Route: 048
     Dates: start: 20030113, end: 20030122
  11. CIPROFLOXACIN [Concomitant]
     Route: 048
     Dates: start: 20030203, end: 20030212
  12. TAMOXIFEN [Concomitant]
     Dosage: Dose as used: UNK
     Dates: start: 200202, end: 200403

REACTIONS (6)
  - Diffuse large B-cell lymphoma [Recovered/Resolved]
  - Weight decreased [Recovered/Resolved]
  - Persistent generalised lymphadenopathy [Recovered/Resolved]
  - Hyperhidrosis [Recovered/Resolved]
  - Fatigue [Recovered/Resolved]
  - Pyrexia [Recovered/Resolved]
